FAERS Safety Report 7985526-6 (Version None)
Quarter: 2011Q4

REPORT INFORMATION
  Report Type: 
  Country: None (occurrence: None)
  Receive Date: 20111216
  Receipt Date: 20111205
  Transmission Date: 20120403
  Serious: Yes (Hospitalization, Other)
  Sender: FDA-Public Use
  Company Number: IN-JHP PHARMACEUTICALS, LLC-JHP201100630

PATIENT
  Age: 13 Year
  Sex: Male
  Weight: 30 kg

DRUGS (10)
  1. GLYCOPYRROLATE [Concomitant]
     Dosage: 0.1 MG, UNK
  2. TRAMADOL HCL [Concomitant]
     Dosage: 60 MG, UNK
  3. THIOPENTAL SODIUM [Concomitant]
     Indication: INDUCTION OF ANAESTHESIA
     Dosage: 150 MG, UNK
  4. NITROUS OXIDE [Concomitant]
     Indication: MAINTENANCE OF ANAESTHESIA
  5. ATRACURIUM [Concomitant]
     Indication: MAINTENANCE OF ANAESTHESIA
     Dosage: 15 MG, UNK
  6. PROPOFOL [Concomitant]
     Indication: MAINTENANCE OF ANAESTHESIA
     Dosage: 50-100 MCG/KG/MIN
  7. EPINEPHRINE [Suspect]
     Indication: HAEMOSTASIS
     Dosage: 330 MCG TOTAL - INTRANASAL INFILTRATION
     Route: 050
  8. ONDANSETRON [Concomitant]
     Dosage: 2 MG, UNK
  9. SUCCINYLCHOLINE CHLORIDE [Concomitant]
     Indication: INDUCTION OF ANAESTHESIA
     Dosage: 50 MG, UNK
  10. OXYGEN [Concomitant]
     Indication: MAINTENANCE OF ANAESTHESIA

REACTIONS (3)
  - PULMONARY OEDEMA [None]
  - ACUTE MYOCARDIAL INFARCTION [None]
  - OVERDOSE [None]
